FAERS Safety Report 9800704 (Version 1)
Quarter: 2014Q1

REPORT INFORMATION
  Report Type: Spontaneous
  Country: CA (occurrence: CA)
  Receive Date: 20140107
  Receipt Date: 20140107
  Transmission Date: 20141002
  Serious: No
  Sender: FDA-Public Use
  Company Number: US-009507513-1401USA001571

PATIENT
  Sex: Male

DRUGS (2)
  1. COSOPT [Suspect]
     Indication: GLAUCOMA
     Route: 047
  2. COSOPT [Suspect]
     Indication: GLAUCOMA
     Route: 047

REACTIONS (5)
  - Eye swelling [Unknown]
  - Eyelid margin crusting [Unknown]
  - Ocular hyperaemia [Unknown]
  - Eye pruritus [Unknown]
  - Drug ineffective [Unknown]
